FAERS Safety Report 15626880 (Version 1)
Quarter: 2018Q4

REPORT INFORMATION
  Report Type: Spontaneous
  Country: CZ (occurrence: CZ)
  Receive Date: 20181116
  Receipt Date: 20181116
  Transmission Date: 20190205
  Serious: Yes (Other)
  Sender: FDA-Public Use
  Company Number: CZ-JNJFOC-20181117607

PATIENT
  Age: 70 Year
  Sex: Female

DRUGS (4)
  1. LETROX [Concomitant]
     Active Substance: LEVOTHYROXINE SODIUM
     Route: 065
  2. INVOKANA [Suspect]
     Active Substance: CANAGLIFLOZIN
     Indication: PRODUCT USED FOR UNKNOWN INDICATION
     Route: 065
  3. LETROX [Concomitant]
     Active Substance: LEVOTHYROXINE SODIUM
     Route: 065
  4. VASOCARDIN [Concomitant]
     Active Substance: METOPROLOL
     Route: 065

REACTIONS (4)
  - Decreased appetite [Recovered/Resolved]
  - Breath odour [Recovered/Resolved]
  - Ageusia [Recovered/Resolved]
  - Skin odour abnormal [Recovered/Resolved]

NARRATIVE: CASE EVENT DATE: 20180903
